FAERS Safety Report 9252946 (Version 2)
Quarter: 2013Q3

REPORT INFORMATION
  Report Type: Spontaneous
  Country: FR (occurrence: FR)
  Receive Date: 20130424
  Receipt Date: 20130730
  Transmission Date: 20140515
  Serious: Yes (Disabling, Other)
  Sender: FDA-Public Use
  Company Number: FR-TEVA-398348ISR

PATIENT
  Sex: Male

DRUGS (3)
  1. CIPROFLOXACINE TEVA 500 MG, COMPRIME PELLICULE SECABLE [Suspect]
     Indication: PROSTATITIS
     Route: 048
     Dates: start: 20121212, end: 20130102
  2. PARACETAMOL TEVA 1 G [Concomitant]
     Route: 048
  3. TAMSULOSIN MYLAN [Concomitant]

REACTIONS (2)
  - Myopathy toxic [Not Recovered/Not Resolved]
  - Muscular weakness [Not Recovered/Not Resolved]
